FAERS Safety Report 7544964-6 (Version None)
Quarter: 2011Q2

REPORT INFORMATION
  Report Type: 
  Country: None (occurrence: None)
  Receive Date: 20110614
  Receipt Date: 20100329
  Transmission Date: 20111010
  Serious: Yes (Other)
  Sender: FDA-Public Use
  Company Number: US-BAYER-200943729NA

PATIENT
  Sex: Female
  Weight: 63.492 kg

DRUGS (30)
  1. SILVADENE [Concomitant]
  2. RENAGEL [Concomitant]
  3. MAGNEVIST [Suspect]
     Dosage: UNK, ONCE
     Dates: start: 20010703, end: 20010703
  4. GADOLINIUM IN UNSPECIFIED DRUG [Suspect]
     Dosage: UNK UNK, ONCE
     Dates: start: 20000222, end: 20000222
  5. GADOLINIUM IN UNSPECIFIED DRUG [Suspect]
     Dates: start: 20060606, end: 20060606
  6. XANAX [Concomitant]
  7. PLAQUENIL [Concomitant]
  8. OMNISCAN [Suspect]
     Indication: NUCLEAR MAGNETIC RESONANCE IMAGING
  9. RAMIPRIL [Concomitant]
  10. MAGNEVIST [Suspect]
     Indication: NUCLEAR MAGNETIC RESONANCE IMAGING
     Dosage: UNK
     Dates: start: 20010508, end: 20010508
  11. GADOLINIUM IN UNSPECIFIED DRUG [Suspect]
     Dates: start: 20060829, end: 20060829
  12. GLEEVEC [Concomitant]
  13. BISOPROLOL FUMARATE [Concomitant]
  14. GADOLINIUM IN UNSPECIFIED DRUG [Suspect]
     Dosage: UNK
     Dates: start: 20020914, end: 20020914
  15. PROPOXYPHENE HYDROCHLORIDE [Concomitant]
  16. EPOGEN [Concomitant]
  17. CATAPRES [Concomitant]
  18. DIFLUCAN [Concomitant]
  19. AVELOX [Concomitant]
  20. PHOSLO [Concomitant]
  21. FORTICAL [Concomitant]
  22. METOPROLOL SUCCINATE [Concomitant]
  23. SOLU-MEDROL [Concomitant]
  24. CELEBREX [Concomitant]
  25. WARFARIN SODIUM [Concomitant]
  26. FOSRENOL [Concomitant]
  27. CARDURA [Concomitant]
  28. XOPENEX [Concomitant]
  29. TRAZODONE HCL [Concomitant]
  30. PREDNISONE [Concomitant]

REACTIONS (13)
  - DEFORMITY [None]
  - MUSCULOSKELETAL STIFFNESS [None]
  - SKIN TIGHTNESS [None]
  - MOBILITY DECREASED [None]
  - MOTOR DYSFUNCTION [None]
  - EXTREMITY CONTRACTURE [None]
  - RASH ERYTHEMATOUS [None]
  - ABASIA [None]
  - SKIN LESION [None]
  - SKIN HYPERTROPHY [None]
  - NEPHROGENIC SYSTEMIC FIBROSIS [None]
  - JOINT RANGE OF MOTION DECREASED [None]
  - SKIN INDURATION [None]
